FAERS Safety Report 10210421 (Version 1)
Quarter: 2014Q2

REPORT INFORMATION
  Report Type: Spontaneous
  Country: US (occurrence: None)
  Receive Date: 20140529
  Receipt Date: 20140529
  Transmission Date: 20141212
  Serious: No
  Sender: FDA-Public Use
  Company Number: None

PATIENT
  Age: 75 Year
  Sex: Male

DRUGS (1)
  1. STIVARGA 40 MG [Suspect]
     Indication: COLON CANCER
     Route: 048
     Dates: start: 20140417

REACTIONS (1)
  - Amnesia [None]
